FAERS Safety Report 15144195 (Version 1)
Quarter: 2018Q3

REPORT INFORMATION
  Report Type: Spontaneous
  Country: US (occurrence: US)
  Receive Date: 20180713
  Receipt Date: 20180713
  Transmission Date: 20181010
  Serious: No
  Sender: FDA-Public Use
  Company Number: US-NOVOPROD-595256

PATIENT

DRUGS (2)
  1. FIASP [Suspect]
     Active Substance: INSULIN ASPART
     Indication: DIABETES MELLITUS
     Dosage: UNK
     Route: 058
     Dates: start: 2017, end: 2017
  2. FIASP [Suspect]
     Active Substance: INSULIN ASPART
     Dosage: TRIPLE OR QUADRUPLE BOLUS SIZES
     Route: 058
     Dates: start: 2017, end: 2017

REACTIONS (2)
  - Insulin resistance [Unknown]
  - Wrong technique in product usage process [Unknown]

NARRATIVE: CASE EVENT DATE: 2017
